FAERS Safety Report 8336418 (Version 5)
Quarter: 2013Q3

REPORT INFORMATION
  Report Type: Spontaneous
  Country: JP (occurrence: None)
  Receive Date: 20120105
  Receipt Date: 20130814
  Transmission Date: 20140515
  Serious: Yes (Hospitalization, Other)
  Sender: FDA-Public Use
  Company Number: AXC-2011-000537

PATIENT
  Age: 57 Year
  Sex: Male

DRUGS (12)
  1. URSODIOL [Suspect]
     Indication: ALCOHOLIC LIVER DISEASE
     Dosage: 400 MG, QD, ORAL
     Route: 048
     Dates: start: 20111021, end: 20111111
  2. OZAGREL [Suspect]
     Indication: CEREBRAL INFARCTION
     Dosage: 160 MG, QD, INTRAVENOUS
     Route: 042
     Dates: start: 20111107, end: 20111111
  3. PLAVIX [Suspect]
     Indication: CEREBRAL INFARCTION
     Dosage: 75 MG, QD, ORAL
     Route: 048
     Dates: start: 20111107, end: 20111111
  4. ASPARA K /00466902/ (ASPARTATE POTASSIUM) [Concomitant]
  5. PHELLOBERIN A /01786401/ (BERBERINE HYDROCHLORIDE, GERANIUM THUNBERGII, HERB EXTRACT) [Concomitant]
  6. CERCINE [Concomitant]
  7. LASIX [Concomitant]
  8. ALDACTONE [Concomitant]
  9. FOIPAN (CAMOSTAT MESILATE) [Concomitant]
  10. TAKEPRON (LANSOPRAZOLE) [Concomitant]
  11. BERIZYM /00517401/ (ENZYMES NOS) [Concomitant]
  12. ELENTAL-P (NUTRIENTS NOS) [Concomitant]

REACTIONS (10)
  - Cerebral infarction [None]
  - Interstitial lung disease [None]
  - Hypokalaemia [None]
  - Oedema peripheral [None]
  - Hypoglycaemia [None]
  - Pancreatitis chronic [None]
  - Diarrhoea [None]
  - Malabsorption [None]
  - Drug effect decreased [None]
  - Oedema peripheral [None]
